FAERS Safety Report 25605137 (Version 2)
Quarter: 2025Q3

REPORT INFORMATION
  Report Type: Spontaneous
  Country: US (occurrence: US)
  Receive Date: 20250725
  Receipt Date: 20250807
  Transmission Date: 20251021
  Serious: No
  Sender: IPSEN BIOPHARMACEUTICALS, INC.
  Company Number: US-IPSEN Group, Research and Development-2025-18084

PATIENT
  Age: 81 Year
  Sex: Female
  Weight: 94 kg

DRUGS (20)
  1. TAZVERIK [Suspect]
     Active Substance: TAZEMETOSTAT HYDROBROMIDE
     Indication: Follicular lymphoma stage I
     Dates: start: 20250712
  2. ALLEGRA [Concomitant]
     Active Substance: FEXOFENADINE HYDROCHLORIDE
  3. Dulcolax [Concomitant]
  4. ENTRESTO [Concomitant]
     Active Substance: SACUBITRIL\VALSARTAN
  5. FLUTICASONE PROPIONATE [Concomitant]
     Active Substance: FLUTICASONE PROPIONATE
  6. FUROSEMIDE [Concomitant]
     Active Substance: FUROSEMIDE
  7. PEPCID [Concomitant]
     Active Substance: FAMOTIDINE
  8. PRAVASTATIN SODIUM [Concomitant]
     Active Substance: PRAVASTATIN SODIUM
  9. REFRESH TEARS [Concomitant]
     Active Substance: CARBOXYMETHYLCELLULOSE SODIUM
  10. SPIRONOLACTONE [Concomitant]
     Active Substance: SPIRONOLACTONE
  11. SYSTANE (HYPROMELLOSE 2910 (4000 MPA.S)) [Concomitant]
     Active Substance: HYPROMELLOSE 2910 (4000 MPA.S)
  12. TRAMADOL HYDROCHLORIDE [Concomitant]
     Active Substance: TRAMADOL HYDROCHLORIDE
  13. TRIAMCINOLONE ACETONIDE [Concomitant]
     Active Substance: TRIAMCINOLONE ACETONIDE
  14. TYLENOL [Concomitant]
     Active Substance: ACETAMINOPHEN
  15. XARELTO [Concomitant]
     Active Substance: RIVAROXABAN
  16. ALLOPURINOL [Concomitant]
     Active Substance: ALLOPURINOL
  17. AMOXICILLIN [Concomitant]
     Active Substance: AMOXICILLIN
  18. BENZONATATE [Concomitant]
     Active Substance: BENZONATATE
  19. LASIX [Concomitant]
     Active Substance: FUROSEMIDE
  20. METOPROLOL TARTRATE [Concomitant]
     Active Substance: METOPROLOL TARTRATE

REACTIONS (9)
  - Sinusitis [Recovering/Resolving]
  - Cough [Recovering/Resolving]
  - Retching [Recovering/Resolving]
  - Nasopharyngitis [Recovering/Resolving]
  - Renal function test abnormal [Recovering/Resolving]
  - Product dose omission issue [Unknown]
  - Product dose omission issue [Unknown]
  - Urine uric acid [Recovering/Resolving]
  - Hyperkeratosis [Recovering/Resolving]

NARRATIVE: CASE EVENT DATE: 20250729
